FAERS Safety Report 18631024 (Version 4)
Quarter: 2021Q1

REPORT INFORMATION
  Report Type: Report from Study
  Country: NL (occurrence: NL)
  Receive Date: 20201217
  Receipt Date: 20210205
  Transmission Date: 20210419
  Serious: Yes (Hospitalization)
  Sender: FDA-Public Use
  Company Number: NL-TOLMAR, INC.-20NL024373

PATIENT
  Age: 74 Year
  Sex: Male

DRUGS (4)
  1. FENTANYL. [Concomitant]
     Active Substance: FENTANYL
     Indication: PAIN
     Dosage: UNK
     Route: 065
     Dates: start: 20200930
  2. ELIGARD [Suspect]
     Active Substance: LEUPROLIDE ACETATE
     Indication: PROSTATE CANCER
     Dosage: 22.5 MG, Q 3 MONTH
     Route: 058
     Dates: start: 20200904
  3. ELIGARD [Suspect]
     Active Substance: LEUPROLIDE ACETATE
     Dosage: 22.5 MG, Q 3 MONTH
     Route: 058
     Dates: start: 20170509
  4. ELIGARD [Suspect]
     Active Substance: LEUPROLIDE ACETATE
     Dosage: 22.5 MG, Q 3 MONTH
     Route: 058
     Dates: start: 20201204

REACTIONS (2)
  - Prostate cancer [Not Recovered/Not Resolved]
  - Back pain [Recovering/Resolving]

NARRATIVE: CASE EVENT DATE: 20201113
